FAERS Safety Report 25678332 (Version 1)
Quarter: 2025Q3

REPORT INFORMATION
  Report Type: Spontaneous
  Country: JP (occurrence: JP)
  Receive Date: 20250813
  Receipt Date: 20250813
  Transmission Date: 20251020
  Serious: Yes (Hospitalization, Other)
  Sender: ORGANON
  Company Number: JP-ORGANON-O2508JPN001035

PATIENT
  Age: 5 Decade
  Sex: Male

DRUGS (1)
  1. PROPECIA [Suspect]
     Active Substance: FINASTERIDE
     Route: 048

REACTIONS (1)
  - Subarachnoid haemorrhage [Unknown]
